FAERS Safety Report 7593869-3 (Version None)
Quarter: 2011Q3

REPORT INFORMATION
  Report Type: 
  Country: None (occurrence: None)
  Receive Date: 20110706
  Receipt Date: 20110630
  Transmission Date: 20111222
  Serious: Yes (Other)
  Sender: FDA-Public Use
  Company Number: PHHY2011BR53709

PATIENT
  Age: 56 Year
  Sex: Female

DRUGS (1)
  1. FORMOTEROL FUMARATE [Suspect]
     Indication: PULMONARY EMBOLISM

REACTIONS (5)
  - SINUSITIS [None]
  - NASAL SEPTUM DISORDER [None]
  - INFECTION [None]
  - INFLUENZA [None]
  - LUNG DISORDER [None]
